FAERS Safety Report 19748834 (Version 2)
Quarter: 2021Q3

REPORT INFORMATION
  Report Type: Spontaneous
  Country: US (occurrence: US)
  Receive Date: 20210826
  Receipt Date: 20210909
  Transmission Date: 20211014
  Serious: Yes (Other)
  Sender: FDA-Public Use
  Company Number: US-PFIZER INC-202101042281

PATIENT
  Age: 59 Year
  Sex: Female
  Weight: 65.77 kg

DRUGS (1)
  1. ESTRING [Suspect]
     Active Substance: ESTRADIOL
     Indication: VULVOVAGINAL DRYNESS
     Dosage: UNK
     Dates: start: 202107, end: 20210811

REACTIONS (4)
  - Discomfort [Unknown]
  - Atrophic vulvovaginitis [Recovering/Resolving]
  - Drug ineffective [Recovering/Resolving]
  - Dyspareunia [Unknown]

NARRATIVE: CASE EVENT DATE: 2021
